FAERS Safety Report 7236018-3 (Version None)
Quarter: 2011Q1

REPORT INFORMATION
  Report Type: 
  Country: None (occurrence: None)
  Receive Date: 20110120
  Receipt Date: 20101130
  Transmission Date: 20110831
  Serious: Yes (Hospitalization)
  Sender: FDA-Public Use
  Company Number: US-BAYER-201034852NA

PATIENT
  Sex: Female
  Weight: 80 kg

DRUGS (5)
  1. YASMIN [Suspect]
     Indication: PRODUCT USED FOR UNKNOWN INDICATION
     Route: 048
  2. LORTAB [Concomitant]
     Dosage: 10 MG, UNK
     Dates: start: 20070613
  3. YAZ [Suspect]
     Indication: PRODUCT USED FOR UNKNOWN INDICATION
     Dosage: UNK
     Route: 048
     Dates: start: 20080101, end: 20090101
  4. ASA [Concomitant]
     Dosage: 81 MG, UNK
  5. CYMBALTA [Concomitant]
     Dosage: 20 MG, BID
     Route: 048
     Dates: start: 20070706

REACTIONS (7)
  - ABDOMINAL PAIN UPPER [None]
  - CHOLECYSTITIS ACUTE [None]
  - NAUSEA [None]
  - VOMITING [None]
  - PYREXIA [None]
  - CHOLELITHIASIS [None]
  - OVARIAN CYST [None]
